FAERS Safety Report 5089602-X (Version None)
Quarter: 2006Q3

REPORT INFORMATION
  Report Type: 
  Country: None (occurrence: None)
  Receive Date: 20060822
  Receipt Date: 20060801
  Transmission Date: 20061208
  Serious: Yes (Hospitalization, Other)
  Sender: FDA-Public Use
  Company Number: US200606002906

PATIENT
  Age: 48 Year
  Sex: Male
  Weight: 77.1 kg

DRUGS (4)
  1. ZYPREXA [Suspect]
     Indication: DRUG USE FOR UNKNOWN INDICATION
     Dates: start: 20010101, end: 20030101
  2. LITHIUM (LITHIUM) [Concomitant]
  3. SERZONE [Concomitant]
  4. PAROXETINE [Concomitant]

REACTIONS (6)
  - DIABETES MELLITUS [None]
  - DIABETIC KETOACIDOSIS [None]
  - HYPERTENSION [None]
  - METABOLIC DISORDER [None]
  - VISION BLURRED [None]
  - WEIGHT DECREASED [None]
